FAERS Safety Report 15646371 (Version 1)
Quarter: 2018Q4

REPORT INFORMATION
  Report Type: Spontaneous
  Country: FR (occurrence: FR)
  Receive Date: 20181122
  Receipt Date: 20181122
  Transmission Date: 20190205
  Serious: Yes (Hospitalization, Congenital Anomaly)
  Sender: FDA-Public Use
  Company Number: FR-TEVA-2018-FR-977276

PATIENT
  Age: 86 Year
  Sex: Female

DRUGS (22)
  1. ZINNAT [Concomitant]
     Active Substance: CEFUROXIME AXETIL
     Route: 065
     Dates: start: 20120629, end: 20120704
  2. DOLIPRANE [Concomitant]
     Active Substance: ACETAMINOPHEN
     Route: 048
  3. DIFFU K [Concomitant]
     Active Substance: POTASSIUM CHLORIDE
     Route: 048
  4. FLECAINE [Concomitant]
     Active Substance: FLECAINIDE
  5. PARIET [Suspect]
     Active Substance: RABEPRAZOLE SODIUM
     Indication: PRODUCT USED FOR UNKNOWN INDICATION
     Route: 065
     Dates: start: 20120710
  6. SINTROM [Concomitant]
     Active Substance: ACENOCOUMAROL
     Dosage: 2 MILLIGRAM DAILY;
     Route: 048
     Dates: end: 20120627
  7. LOVENOX [Suspect]
     Active Substance: ENOXAPARIN SODIUM
     Indication: PRODUCT USED FOR UNKNOWN INDICATION
     Route: 051
     Dates: start: 20120628, end: 20120704
  8. IMOVANE [Suspect]
     Active Substance: ZOPICLONE
     Indication: PRODUCT USED FOR UNKNOWN INDICATION
     Route: 048
     Dates: start: 20120704
  9. HAVLANE [Concomitant]
     Active Substance: LOPRAZOLAM
     Dosage: 1 MILLIGRAM DAILY;
     Route: 048
  10. DAKINS FULL [Concomitant]
     Active Substance: SODIUM HYPOCHLORITE
     Indication: WOUND TREATMENT
     Route: 003
     Dates: start: 20120725
  11. COUMADINE [Concomitant]
     Active Substance: WARFARIN SODIUM
     Route: 048
  12. FRAXODI [Concomitant]
     Active Substance: NADROPARIN CALCIUM
     Route: 065
  13. CIPROFLOXACIN. [Suspect]
     Active Substance: CIPROFLOXACIN
     Indication: PRODUCT USED FOR UNKNOWN INDICATION
     Route: 065
     Dates: start: 20120713, end: 20120723
  14. L-THYROXINE [Concomitant]
     Active Substance: LEVOTHYROXINE
     Dosage: 9 GTT DAILY;
     Route: 048
  15. LOVENOX [Suspect]
     Active Substance: ENOXAPARIN SODIUM
     Route: 051
     Dates: start: 20120717, end: 20120723
  16. AUGMENTIN [Suspect]
     Active Substance: AMOXICILLIN\CLAVULANATE POTASSIUM
     Route: 065
     Dates: start: 20120713, end: 20120713
  17. ARIXTRA [Suspect]
     Active Substance: FONDAPARINUX SODIUM
     Indication: PRODUCT USED FOR UNKNOWN INDICATION
     Route: 065
     Dates: start: 20120704, end: 20120717
  18. FURADANTINE [Concomitant]
     Active Substance: NITROFURANTOIN
     Route: 048
     Dates: start: 20120712, end: 20120713
  19. SERESTA [Suspect]
     Active Substance: OXAZEPAM
     Indication: PRODUCT USED FOR UNKNOWN INDICATION
     Route: 065
     Dates: start: 20120713
  20. AUGMENTIN [Suspect]
     Active Substance: AMOXICILLIN\CLAVULANATE POTASSIUM
     Indication: PRODUCT USED FOR UNKNOWN INDICATION
     Route: 065
     Dates: start: 20120718, end: 20120719
  21. PEVARYL [Concomitant]
     Active Substance: ECONAZOLE NITRATE
     Indication: FUNGAL INFECTION
     Route: 003
     Dates: start: 20120725
  22. BETADINE [Concomitant]
     Active Substance: POVIDONE-IODINE
     Indication: WOUND TREATMENT
     Route: 003
     Dates: start: 201207

REACTIONS (5)
  - Dermatitis exfoliative generalised [Recovered/Resolved]
  - Oedema [Unknown]
  - Drug reaction with eosinophilia and systemic symptoms [Recovered/Resolved with Sequelae]
  - Alopecia [Recovering/Resolving]
  - Erythema [Recovered/Resolved]

NARRATIVE: CASE EVENT DATE: 20120725
